FAERS Safety Report 12201193 (Version 1)
Quarter: 2016Q1

REPORT INFORMATION
  Report Type: Spontaneous
  Country: US (occurrence: US)
  Receive Date: 20160322
  Receipt Date: 20160322
  Transmission Date: 20160526
  Serious: No
  Sender: FDA-Public Use
  Company Number: US-SA-2015SA060368

PATIENT
  Age: 30 Year
  Sex: Female

DRUGS (1)
  1. NASACORT ALLERGY 24HR [Suspect]
     Active Substance: TRIAMCINOLONE ACETONIDE
     Indication: MULTIPLE ALLERGIES
     Dosage: PRODUCT START DATE: 3-4 MONTHS AGO?DOSAGE: 1 SPRAY EVERY NIGHT
     Route: 045

REACTIONS (1)
  - Dysgeusia [Recovered/Resolved]
